FAERS Safety Report 17471638 (Version 1)
Quarter: 2020Q1

REPORT INFORMATION
  Report Type: Spontaneous
  Country: GB (occurrence: GB)
  Receive Date: 20200228
  Receipt Date: 20200228
  Transmission Date: 20200409
  Serious: Yes (Disabling)
  Sender: FDA-Public Use
  Company Number: GB-TEVA-2020-GB-1192306

PATIENT
  Age: 40 Year
  Sex: Female
  Weight: 94 kg

DRUGS (10)
  1. RAMIPRIL. [Concomitant]
     Active Substance: RAMIPRIL
     Dosage: 1 DOSAGE FORM, INSTEAD OF LABETALOL
     Dates: start: 20191212, end: 20200212
  2. LOSARTAN. [Suspect]
     Active Substance: LOSARTAN
     Dosage: 25 MG
     Route: 065
     Dates: start: 20200207
  3. DIAZEPAM. [Concomitant]
     Active Substance: DIAZEPAM
     Dosage: HALF OR ONE TABLE AS REQUIRED .  NOT FOR LONG TERM USE.
     Dates: start: 20200122
  4. LABETALOL HYDROCHLORIDE. [Concomitant]
     Active Substance: LABETALOL HYDROCHLORIDE
     Dosage: 2 DOSAGE FORMS
     Dates: start: 20190919, end: 20191212
  5. MOMETASONE [Concomitant]
     Active Substance: MOMETASONE
     Dosage: 2 DOSAGE FORMS. SPRAYS
     Dates: start: 20181026
  6. ACETYLSALICYLIC ACID [Concomitant]
     Active Substance: ASPIRIN
     Dosage: 1 DOSAGE FORM, UNTIL BRTH OF BABY
     Dates: start: 20191113, end: 20191212
  7. FOLIC ACID. [Concomitant]
     Active Substance: FOLIC ACID
     Dosage: 1 DOSAGE FORM
     Dates: start: 20191113, end: 20191212
  8. ATENOLOL. [Concomitant]
     Active Substance: ATENOLOL
     Dosage: 1 DOSAGE FORM, IN MORNING
     Dates: start: 20200130
  9. AMLODIPINE [Concomitant]
     Active Substance: AMLODIPINE BESYLATE
     Dosage: 1 DOSAGE FORM
     Dates: start: 20200210
  10. LEVOTHYROXINE. [Concomitant]
     Active Substance: LEVOTHYROXINE
     Dosage: 125 MCG, AS DIRECTED
     Dates: start: 20170807

REACTIONS (2)
  - Neck pain [Recovered/Resolved]
  - Musculoskeletal pain [Recovered/Resolved]

NARRATIVE: CASE EVENT DATE: 20200212
